FAERS Safety Report 7310701 (Version 2)
Quarter: 2014Q1

REPORT INFORMATION
  Report Type: Spontaneous
  Country: US (occurrence: None)
  Receive Date: 20100217
  Receipt Date: 20140107
  Transmission Date: 20141002
  Serious: Yes (Other)
  Sender: FDA-Public Use
  Company Number: 2010S1000894

PATIENT
  Age: 58 Year
  Sex: Male
  Weight: 129.28 kg

DRUGS (6)
  1. FLEET PHOSPHO-SODA [Suspect]
     Indication: PRODUCT USED FOR UNKNOWN INDICATION
     Dosage: ;PO
     Route: 048
     Dates: start: 20071120
  2. ALBUTEROL(SALBUTAMOL) [Concomitant]
  3. EFFEXOR(VENLAFAXINE HYDROCHLORIDE) [Concomitant]
  4. ATIVAN(LORAZEPAM) [Concomitant]
  5. VICODIN(PARACETAMOL, HYDROCODONE BITRATE) [Concomitant]
  6. NEXIUM (ESOMEPRAZOLE MAGNESIUM) [Concomitant]

REACTIONS (3)
  - Renal impairment [None]
  - Incisional hernia [None]
  - Renal failure chronic [None]
